FAERS Safety Report 11389031 (Version 1)
Quarter: 2015Q3

REPORT INFORMATION
  Report Type: Spontaneous
  Country: US (occurrence: US)
  Receive Date: 20150811
  Receipt Date: 20150811
  Transmission Date: 20151125
  Serious: Yes (Hospitalization, Congenital Anomaly, Other)
  Sender: FDA-Public Use
  Company Number: US-APOTEX-2015AP010613

PATIENT

DRUGS (1)
  1. PAXIL [Suspect]
     Active Substance: PAROXETINE HYDROCHLORIDE
     Indication: PRODUCT USED FOR UNKNOWN INDICATION
     Dosage: UNK
     Route: 064

REACTIONS (7)
  - Left ventricular hypertrophy [Unknown]
  - Aortic valve incompetence [Unknown]
  - Atrial septal defect [Unknown]
  - Bicuspid aortic valve [Unknown]
  - Cardiac murmur [Unknown]
  - Congenital aortic stenosis [Unknown]
  - Foetal exposure during pregnancy [Unknown]
